FAERS Safety Report 5508939-0 (Version None)
Quarter: 2007Q4

REPORT INFORMATION
  Report Type: 
  Country: None (occurrence: None)
  Receive Date: 20071107
  Receipt Date: 20071029
  Transmission Date: 20080405
  Serious: Yes (Disabling)
  Sender: FDA-Public Use
  Company Number: GB-ABBOTT-07P-167-0363619-00

PATIENT
  Sex: Female
  Weight: 121 kg

DRUGS (6)
  1. HUMIRA [Suspect]
     Indication: RHEUMATOID ARTHRITIS
     Route: 058
     Dates: start: 20050727
  2. LEFLUNOMIDE [Concomitant]
     Indication: RHEUMATOID ARTHRITIS
     Route: 048
     Dates: start: 20021108
  3. LEVOTHYROXINE SODIUM [Concomitant]
     Indication: HYPOTHYROIDISM
     Route: 048
  4. LANSOPRAZOLE [Concomitant]
     Indication: DYSPEPSIA
     Route: 048
  5. TERBUTALINE SULFATE [Concomitant]
     Indication: ASTHMA
     Route: 048
  6. SERETIDE [Concomitant]
     Indication: ASTHMA
     Dosage: PUFF (ROUTE)

REACTIONS (2)
  - OTITIS MEDIA [None]
  - TINNITUS [None]
